FAERS Safety Report 8046148-4 (Version None)
Quarter: 2012Q1

REPORT INFORMATION
  Report Type: 
  Country: None (occurrence: None)
  Receive Date: 20120113
  Receipt Date: 20120109
  Transmission Date: 20120608
  Serious: Yes (Other)
  Sender: FDA-Public Use
  Company Number: US-TEVA-317103USA

PATIENT
  Sex: Female

DRUGS (2)
  1. SAMARIUM (153 SM) LEXIDRONAM [Suspect]
     Indication: METASTASES TO BONE
  2. DOXORUBICIN HCL [Suspect]
     Indication: METASTASES TO BONE

REACTIONS (2)
  - OEDEMA PERIPHERAL [None]
  - FIBROSIS [None]
